FAERS Safety Report 11540594 (Version 1)
Quarter: 2015Q3

REPORT INFORMATION
  Report Type: Spontaneous
  Country: US (occurrence: US)
  Receive Date: 20150923
  Receipt Date: 20150923
  Transmission Date: 20151125
  Serious: No
  Sender: FDA-Public Use
  Company Number: US-BEH-2015050603

PATIENT
  Sex: Female
  Weight: 72.6 kg

DRUGS (26)
  1. PREDNISONE. [Concomitant]
     Active Substance: PREDNISONE
     Dosage: 20 MG
     Route: 048
  2. TOPIRAMATE. [Concomitant]
     Active Substance: TOPIRAMATE
     Route: 048
  3. PHENTERMINE. [Concomitant]
     Active Substance: PHENTERMINE
     Dosage: 37.5 MG DAILY
  4. FLUTICASONE PROP [Concomitant]
     Dosage: 50MCG BID
     Route: 048
  5. SEROQUEL [Concomitant]
     Active Substance: QUETIAPINE FUMARATE
     Dosage: 50 MG HS
     Route: 048
  6. XANAX 0.5 MG [Concomitant]
     Dosage: PRN
     Route: 048
  7. SOLU- MEDROL 125MG/2ML VIAL [Concomitant]
     Route: 042
  8. MIACALCIN INJ [Concomitant]
     Dosage: 1 APPLICATION, 200 IU/ML
  9. LEXAPRO [Concomitant]
     Active Substance: ESCITALOPRAM OXALATE
     Dosage: 10 MG, DAILY
     Route: 048
  10. DIPHENHYDRAMINE. [Concomitant]
     Active Substance: DIPHENHYDRAMINE
     Dosage: 25 MG UD
     Route: 048
  11. EPIPEN [Concomitant]
     Active Substance: EPINEPHRINE
     Dosage: 0.3 MG PRN ANA
     Route: 030
  12. LEVAQUIN [Concomitant]
     Active Substance: LEVOFLOXACIN
     Route: 048
  13. SINGULAIR [Concomitant]
     Active Substance: MONTELUKAST SODIUM
     Route: 048
  14. DEPO- TESTADIOL [Concomitant]
     Dosage: 50 MG Q3W
     Route: 030
  15. IMIPRAMINE [Concomitant]
     Active Substance: IMIPRAMINE
     Dosage: 50 MG BID
  16. PRIVIGEN [Suspect]
     Active Substance: HUMAN IMMUNOGLOBULIN G
     Indication: PSEUDOLYMPHOMA
     Dosage: 10 GM VIAL
     Route: 042
  17. PRIVIGEN [Suspect]
     Active Substance: HUMAN IMMUNOGLOBULIN G
     Dosage: 20 GM VIAL
     Route: 042
  18. AZELASTINE HCL 0.05% DROPS [Concomitant]
     Dosage: 1 DOSE, 0.05% DROPS
  19. NORMAL SALINE [Concomitant]
     Active Substance: SODIUM CHLORIDE
     Route: 042
  20. OXYCODONE [Concomitant]
     Active Substance: OXYCODONE
     Dosage: 5 MG, Q6H
     Route: 048
  21. DEXMETHYLPHENIDATE [Concomitant]
     Active Substance: DEXMETHYLPHENIDATE HYDROCHLORIDE
     Dosage: 2.5 MG UD
     Route: 048
  22. ESTRADIOL. [Concomitant]
     Active Substance: ESTRADIOL
     Route: 048
  23. HEPARIN [Concomitant]
     Active Substance: HEPARIN SODIUM
     Dosage: 100 UN/ML HEP 1-5
     Route: 042
  24. SODIUM CHLORIDE. [Concomitant]
     Active Substance: SODIUM CHLORIDE
     Dosage: 0.9% NS2-5 DILU
     Route: 030
  25. AUGMENTIN XR 1.000-6.25 [Concomitant]
     Dosage: 1 TAB BID. 2,000-125
     Route: 048
  26. FLUOXETINE [Concomitant]
     Active Substance: FLUOXETINE\FLUOXETINE HYDROCHLORIDE
     Route: 048

REACTIONS (3)
  - Vomiting [Unknown]
  - Nausea [Unknown]
  - Headache [Unknown]
